FAERS Safety Report 9080325 (Version 1)
Quarter: 2013Q1

REPORT INFORMATION
  Report Type: Report from Study
  Country: US (occurrence: US)
  Receive Date: 20130130
  Receipt Date: 20130130
  Transmission Date: 20140127
  Serious: No
  Sender: FDA-Public Use
  Company Number: US-ABBOTT-12P-163-0960041-00

PATIENT
  Age: 60 Year
  Sex: Female

DRUGS (14)
  1. HUMIRA 40 MG/0.8 ML PEN [Suspect]
     Indication: RHEUMATOID ARTHRITIS
     Dates: start: 20120710
  2. LISINOPRIL [Concomitant]
     Indication: PRODUCT USED FOR UNKNOWN INDICATION
     Dosage: 20 TO 25 MG EVERY DAY
  3. METFORMIN [Concomitant]
     Indication: PRODUCT USED FOR UNKNOWN INDICATION
     Dosage: 500 MG 1 TABLET EVERY 12 HOURS
  4. HYDRALAZINE [Concomitant]
     Indication: PRODUCT USED FOR UNKNOWN INDICATION
     Dosage: 25 MG 1 TABLET THREE TIMES A DAY
  5. CARVEDILOL [Concomitant]
     Indication: PRODUCT USED FOR UNKNOWN INDICATION
     Dosage: 25 MG 1 TABLET TWICE A DAY
  6. FOLIC ACID [Concomitant]
     Indication: PRODUCT USED FOR UNKNOWN INDICATION
     Dosage: 1 MG 1 TABLET EVERY DAY
  7. LOVASTATIN [Concomitant]
     Indication: PRODUCT USED FOR UNKNOWN INDICATION
     Dosage: 20 MG 1 TABLET
  8. REMIFEMIN [Concomitant]
     Indication: HOT FLUSH
     Dosage: TWO DAILY
  9. LIVER OIL WITH VITAMIN A + D [Concomitant]
     Indication: PRODUCT USED FOR UNKNOWN INDICATION
  10. HORSE PILL [Concomitant]
     Indication: HAIR DISORDER
     Dosage: EVERY DAY
  11. GELNIQUE [Concomitant]
     Indication: URINARY INCONTINENCE
  12. CALCIUM [Concomitant]
     Indication: PRODUCT USED FOR UNKNOWN INDICATION
  13. BARLEY GREEN [Concomitant]
     Indication: PRODUCT USED FOR UNKNOWN INDICATION
  14. ALOE VERA JUICE [Concomitant]
     Indication: PRODUCT USED FOR UNKNOWN INDICATION

REACTIONS (3)
  - Stress [Unknown]
  - Nervousness [Recovered/Resolved]
  - Headache [Recovered/Resolved]
